FAERS Safety Report 25090536 (Version 1)
Quarter: 2025Q1

REPORT INFORMATION
  Report Type: Report from Study
  Country: GB (occurrence: GB)
  Receive Date: 20250318
  Receipt Date: 20250318
  Transmission Date: 20250409
  Serious: Yes (Death, Other)
  Sender: PFIZER
  Company Number: GB-PFIZER INC-202500058847

PATIENT
  Age: 70 Year
  Sex: Male

DRUGS (6)
  1. LINEZOLID [Suspect]
     Active Substance: LINEZOLID
     Indication: Tuberculosis
     Dosage: 600 MG, 1X/DAY
     Route: 048
  2. LINEZOLID [Suspect]
     Active Substance: LINEZOLID
     Dosage: 300 MG, 1X/DAY
     Route: 048
  3. BEDAQUILINE [Suspect]
     Active Substance: BEDAQUILINE
     Indication: Tuberculosis
     Dosage: 400 MG, 1X/DAY
     Route: 048
  4. BEDAQUILINE [Suspect]
     Active Substance: BEDAQUILINE
     Route: 048
  5. MOXIFLOXACIN [Suspect]
     Active Substance: MOXIFLOXACIN
     Indication: Tuberculosis
     Dosage: 400 MG, 1X/DAY
  6. PRETOMANID [Suspect]
     Active Substance: PRETOMANID
     Indication: Tuberculosis
     Dosage: 200 MG, 1X/DAY
     Route: 048

REACTIONS (1)
  - Cardiac failure acute [Fatal]
